FAERS Safety Report 13704503 (Version 1)
Quarter: 2017Q2

REPORT INFORMATION
  Report Type: Spontaneous
  Country: US (occurrence: US)
  Receive Date: 20170630
  Receipt Date: 20170630
  Transmission Date: 20170830
  Serious: Yes (Other)
  Sender: FDA-Public Use
  Company Number: US-WEST-WARD PHARMACEUTICALS CORP.-US-H14001-17-02123

PATIENT
  Age: 29 Year
  Sex: Female
  Weight: 87.3 kg

DRUGS (9)
  1. FENTANYL. [Suspect]
     Active Substance: FENTANYL
     Indication: PRODUCT USED FOR UNKNOWN INDICATION
     Dosage: 2.5 ?G/ML
     Route: 008
  2. FENTANYL. [Suspect]
     Active Substance: FENTANYL
     Dosage: 2.5 ?G/ML
     Route: 008
  3. LIDOCAINE 1.5%, EPINEPHRINE 1:200,000 [Suspect]
     Active Substance: EPINEPHRINE\LIDOCAINE HYDROCHLORIDE
     Indication: PRODUCT USED FOR UNKNOWN INDICATION
     Route: 065
  4. CHLORHEXIDINE 2% (CHLORHEXIDINE ACETATE) [Concomitant]
     Active Substance: CHLORHEXIDINE ACETATE
     Indication: PRODUCT USED FOR UNKNOWN INDICATION
     Route: 065
  5. LIDOCAINE 1% [Suspect]
     Active Substance: LIDOCAINE
     Indication: PRODUCT USED FOR UNKNOWN INDICATION
     Route: 037
  6. FENTANYL. [Suspect]
     Active Substance: FENTANYL
     Route: 037
  7. BUPIVACAINE 0.1% [Suspect]
     Active Substance: BUPIVACAINE
     Dosage: BOLUS - A MAXIMUM BOLUS FREQUENCY 3/HR
     Route: 008
  8. BUPIVACAINE 0.1% [Suspect]
     Active Substance: BUPIVACAINE
     Indication: PRODUCT USED FOR UNKNOWN INDICATION
     Dosage: LOCK-OUT PERIOD OF 10 MINUTES
     Route: 008
  9. BUPIVACAINE 0.25% [Suspect]
     Active Substance: BUPIVACAINE
     Indication: PRODUCT USED FOR UNKNOWN INDICATION
     Route: 037

REACTIONS (9)
  - Sinus tachycardia [Recovering/Resolving]
  - Palpitations [Recovering/Resolving]
  - Dysgeusia [Recovering/Resolving]
  - Feeling abnormal [Recovering/Resolving]
  - Toxicity to various agents [Recovering/Resolving]
  - Maternal exposure during pregnancy [Recovered/Resolved]
  - Tinnitus [Recovering/Resolving]
  - Wrong technique in device usage process [None]
  - Accidental exposure to product [Recovering/Resolving]
